FAERS Safety Report 8124584-5 (Version None)
Quarter: 2012Q1

REPORT INFORMATION
  Report Type: 
  Country: None (occurrence: None)
  Receive Date: 20120209
  Receipt Date: 20120203
  Transmission Date: 20120608
  Serious: Yes (Other)
  Sender: FDA-Public Use
  Company Number: JP-BAYER-2012-008063

PATIENT
  Age: 31 Year
  Sex: Female

DRUGS (1)
  1. KOGENATE FS [Suspect]

REACTIONS (2)
  - CAESAREAN SECTION [None]
  - NO ADVERSE EVENT [None]
